FAERS Safety Report 7864709-X (Version None)
Quarter: 2011Q4

REPORT INFORMATION
  Report Type: 
  Country: None (occurrence: None)
  Receive Date: 20111028
  Receipt Date: 20111021
  Transmission Date: 20120403
  Serious: Yes (Other)
  Sender: FDA-Public Use
  Company Number: BR-PFIZER INC-2011256662

PATIENT
  Age: 21 Year
  Sex: Male

DRUGS (3)
  1. SPIRONOLACTONE [Suspect]
     Dosage: 80 MG, 2X/DAY
     Dates: start: 20101201, end: 20110601
  2. ENALAPRIL [Suspect]
     Dosage: 60 MG, 3X/DAY
  3. SPIRONOLACTONE [Suspect]
     Dosage: 25 MG, UNK
     Dates: end: 20101201

REACTIONS (3)
  - BLOOD POTASSIUM INCREASED [None]
  - PROTEINURIA [None]
  - BLOOD CREATININE INCREASED [None]
